FAERS Safety Report 7360285-9 (Version None)
Quarter: 2011Q1

REPORT INFORMATION
  Report Type: 
  Country: None (occurrence: None)
  Receive Date: 20110310
  Receipt Date: 20110224
  Transmission Date: 20110831
  Serious: Yes (Hospitalization)
  Sender: FDA-Public Use
  Company Number: UTC-005328

PATIENT
  Age: 52 Year
  Sex: Female

DRUGS (3)
  1. TYVASO [Suspect]
     Indication: PULMONARY ARTERIAL HYPERTENSION
     Dosage: 44 MCG (36 MCG,4 IN 1 D),INHALATION
     Route: 055
     Dates: start: 20101201
  2. CELLCEPT [Concomitant]
  3. PROGRAF [Concomitant]

REACTIONS (1)
  - INFLUENZA [None]
